FAERS Safety Report 22082197 (Version 1)
Quarter: 2023Q1

REPORT INFORMATION
  Report Type: Spontaneous
  Country: JP (occurrence: JP)
  Receive Date: 20230310
  Receipt Date: 20230310
  Transmission Date: 20230417
  Serious: Yes (Other)
  Sender: FDA-Public Use
  Company Number: JP-CHEPLA-2023002996

PATIENT
  Age: 48 Year
  Sex: Male

DRUGS (10)
  1. VALGANCICLOVIR [Suspect]
     Active Substance: VALGANCICLOVIR
     Route: 048
     Dates: start: 201402
  2. GANCICLOVIR [Suspect]
     Active Substance: GANCICLOVIR
     Dosage: IV DRIP
     Dates: start: 201402, end: 201402
  3. PREDNISOLONE [Concomitant]
     Active Substance: PREDNISOLONE
     Dates: start: 201401
  4. METHYLPREDNISOLONE [Concomitant]
     Active Substance: METHYLPREDNISOLONE
     Dates: start: 201401, end: 201401
  5. HYDROXYCHLOROQUINE SULFATE [Concomitant]
     Active Substance: HYDROXYCHLOROQUINE SULFATE
     Dates: start: 2014
  6. MYCOPHENOLATE MOFETIL [Concomitant]
     Active Substance: MYCOPHENOLATE MOFETIL
  7. CEFTRIAXONE SODIUM [Concomitant]
     Active Substance: CEFTRIAXONE SODIUM
  8. CEFDITOREN PIVOXIL [Concomitant]
     Active Substance: CEFDITOREN PIVOXIL
  9. LEVOFLOXACIN HEMIHYDRATE [Concomitant]
     Active Substance: LEVOFLOXACIN
  10. ATORVASTATIN [Concomitant]
     Active Substance: ATORVASTATIN

REACTIONS (2)
  - Abdominal pain [Unknown]
  - Large intestine perforation [Unknown]
